FAERS Safety Report 15400504 (Version 1)
Quarter: 2018Q3

REPORT INFORMATION
  Report Type: Report from Study
  Country: US (occurrence: US)
  Receive Date: 20180919
  Receipt Date: 20180919
  Transmission Date: 20181010
  Serious: No
  Sender: FDA-Public Use
  Company Number: US-CELGENEUS-USA-20180905350

PATIENT
  Age: 45 Year
  Sex: Male

DRUGS (5)
  1. REVLIMID [Suspect]
     Active Substance: LENALIDOMIDE
     Indication: B-CELL LYMPHOMA
     Route: 048
     Dates: start: 201807, end: 201807
  2. REVLIMID [Suspect]
     Active Substance: LENALIDOMIDE
     Indication: OFF LABEL USE
  3. HYALURONIDASE HUMAN [Concomitant]
     Indication: B-CELL LYMPHOMA
     Route: 065
  4. MABTHERA SC [Concomitant]
     Indication: B-CELL LYMPHOMA
     Route: 058
  5. MINICHOP [Concomitant]
     Indication: B-CELL LYMPHOMA
     Route: 065

REACTIONS (1)
  - Mucosal inflammation [Unknown]
